FAERS Safety Report 24092578 (Version 1)
Quarter: 2024Q3

REPORT INFORMATION
  Report Type: Spontaneous
  Country: PK (occurrence: PK)
  Receive Date: 20240715
  Receipt Date: 20240715
  Transmission Date: 20241017
  Serious: Yes (Hospitalization, Other)
  Sender: GENEYORK PHARMA
  Company Number: PK-GENEYORK-2024PPLIT00040

PATIENT
  Age: 61 Year
  Sex: Female

DRUGS (2)
  1. PREDNISONE [Suspect]
     Active Substance: PREDNISONE
     Indication: Chronic obstructive pulmonary disease
     Route: 065
  2. ROFLUMILAST [Concomitant]
     Active Substance: ROFLUMILAST
     Indication: Chronic obstructive pulmonary disease
     Route: 065

REACTIONS (1)
  - Lung hernia [Recovering/Resolving]
